FAERS Safety Report 8279240-X (Version None)
Quarter: 2012Q2

REPORT INFORMATION
  Report Type: 
  Country: None (occurrence: None)
  Receive Date: 20120412
  Receipt Date: 20110317
  Transmission Date: 20120825
  Serious: No
  Sender: FDA-Public Use
  Company Number: US-ASTRAZENECA-2010SE48863

PATIENT
  Age: 71 Year
  Sex: Female
  Weight: 102.1 kg

DRUGS (7)
  1. NEXIUM [Suspect]
     Route: 048
  2. LIMIBITROL [Concomitant]
  3. TOPROL-XL [Suspect]
     Route: 048
  4. CADUET [Concomitant]
  5. TOPROL-XL [Suspect]
     Route: 048
  6. TRLIPEX [Concomitant]
  7. NEXIUM [Suspect]
     Indication: DYSPEPSIA
     Route: 048
     Dates: start: 20010101, end: 20110301

REACTIONS (6)
  - ANKLE FRACTURE [None]
  - DYSPEPSIA [None]
  - DRUG DOSE OMISSION [None]
  - BLOOD TRIGLYCERIDES INCREASED [None]
  - FALL [None]
  - TENDON RUPTURE [None]
